FAERS Safety Report 10409408 (Version 1)
Quarter: 2014Q3

REPORT INFORMATION
  Report Type: Spontaneous
  Country: DK (occurrence: AU)
  Receive Date: 20140826
  Receipt Date: 20140826
  Transmission Date: 20150326
  Serious: Yes (Other)
  Sender: FDA-Public Use
  Company Number: AU-FRI-1000070151

PATIENT
  Age: 50 Year
  Sex: Female

DRUGS (4)
  1. IRBESARTAN. [Concomitant]
     Active Substance: IRBESARTAN
     Dosage: 150 MG DAILY
     Dates: start: 20120714
  2. CITALOPRAM [Suspect]
     Active Substance: CITALOPRAM HYDROBROMIDE
     Dosage: 40 MG DAILY
     Dates: start: 20130818
  3. NOVASONE [Concomitant]
     Active Substance: MOMETASONE FUROATE
  4. SEROQUEL [Suspect]
     Active Substance: QUETIAPINE FUMARATE
     Dosage: 50 MG DAILY
     Dates: start: 20140408

REACTIONS (6)
  - Dry mouth [Unknown]
  - Muscle spasms [Unknown]
  - Blood pressure abnormal [Unknown]
  - Neuroleptic malignant syndrome [Unknown]
  - Disturbance in attention [Unknown]
  - Headache [Unknown]
